FAERS Safety Report 15319935 (Version 2)
Quarter: 2018Q3

REPORT INFORMATION
  Report Type: Spontaneous
  Country: ZA (occurrence: ZA)
  Receive Date: 20180827
  Receipt Date: 20180828
  Transmission Date: 20181010
  Serious: Yes (Hospitalization, Other)
  Sender: FDA-Public Use
  Company Number: ZA-STRIDES ARCOLAB LIMITED-2018SP007052

PATIENT

DRUGS (6)
  1. METRONIDAZOLE. [Suspect]
     Active Substance: METRONIDAZOLE
     Indication: URINARY TRACT INFECTION
     Dosage: UNKNOWN
     Route: 065
  2. BETAMETHASONE. [Suspect]
     Active Substance: BETAMETHASONE
     Indication: MATERNAL THERAPY TO ENHANCE FOETAL LUNG MATURITY
     Dosage: UNKNOWN
     Route: 065
  3. CEFTRIAXONE. [Suspect]
     Active Substance: CEFTRIAXONE
     Indication: PRODUCT USED FOR UNKNOWN INDICATION
     Dosage: UNK
     Route: 065
  4. DEXTROSE. [Suspect]
     Active Substance: DEXTROSE
     Indication: KETOACIDOSIS
     Dosage: UNK
     Route: 042
  5. AZITHROMYCIN ANHYDROUS. [Suspect]
     Active Substance: AZITHROMYCIN ANHYDROUS
     Indication: URINARY TRACT INFECTION
     Dosage: UNKNOWN
     Route: 065
  6. LACTATED RINGERS SOLUTION [Suspect]
     Active Substance: CALCIUM CHLORIDE\POTASSIUM CHLORIDE\SODIUM CHLORIDE\SODIUM LACTATE
     Indication: URINARY TRACT INFECTION
     Dosage: UNKNOWN
     Route: 042

REACTIONS (8)
  - Nausea [Recovered/Resolved]
  - Metabolic acidosis [Recovered/Resolved]
  - Tachypnoea [Recovered/Resolved]
  - Ketoacidosis [Recovered/Resolved]
  - Vomiting [Recovered/Resolved]
  - Sinus tachycardia [Recovered/Resolved]
  - Dyspnoea [Recovered/Resolved]
  - Exposure during pregnancy [Unknown]
